FAERS Safety Report 9779576 (Version 5)
Quarter: 2014Q2

REPORT INFORMATION
  Report Type: Report from Study
  Country: SE (occurrence: SE)
  Receive Date: 20131223
  Receipt Date: 20140422
  Transmission Date: 20141212
  Serious: Yes (Hospitalization, Disabling)
  Sender: FDA-Public Use
  Company Number: SE-BAYER-2013-157009

PATIENT
  Age: 73 Year
  Sex: Male
  Weight: 64.3 kg

DRUGS (16)
  1. ALPHARADIN [Suspect]
     Indication: HORMONE-REFRACTORY PROSTATE CANCER
     Dosage: 50KBQ/KG, DAILY
     Route: 042
     Dates: start: 20130201, end: 20130201
  2. ALPHARADIN [Suspect]
     Indication: METASTASES TO BONE
     Dosage: 50KBQ/KG, DAILY
     Route: 042
     Dates: start: 20130304, end: 20130304
  3. ALPHARADIN [Suspect]
     Indication: HORMONE-REFRACTORY PROSTATE CANCER
     Dosage: 50KBQ/KG, DAILY
     Route: 042
     Dates: start: 20130404, end: 20130404
  4. ALPHARADIN [Suspect]
     Indication: HORMONE-REFRACTORY PROSTATE CANCER
     Dosage: 50KBQ/KG, DAILY
     Route: 042
     Dates: start: 20130503, end: 20130503
  5. ALPHARADIN [Suspect]
     Indication: HORMONE-REFRACTORY PROSTATE CANCER
     Dosage: 50KBQ/KG, DAILY
     Route: 042
     Dates: start: 20130530, end: 20130530
  6. ALPHARADIN [Suspect]
     Indication: HORMONE-REFRACTORY PROSTATE CANCER
     Dosage: 50KBQ/KG, DAILY
     Route: 042
     Dates: start: 20130626, end: 20130626
  7. BISOPROLOL [Concomitant]
     Indication: BLOOD PRESSURE ABNORMAL
     Dosage: 5MG DAILY
     Route: 048
     Dates: start: 20121112
  8. BETAPRED [Concomitant]
     Indication: NAUSEA
     Dosage: 4.0MG DAILY
     Route: 048
     Dates: start: 20130326
  9. BETAPRED [Concomitant]
     Indication: NAUSEA
     Dosage: 1.0MG DAILY
     Route: 048
     Dates: start: 20130626
  10. PANODIL [Concomitant]
     Indication: PAIN
     Dosage: 4 DAILY
     Route: 048
     Dates: start: 20130720, end: 20131122
  11. ONDASETRON [Concomitant]
     Indication: NAUSEA
     Dosage: 4-16MG
     Route: 048
     Dates: start: 20130326
  12. MORFIN [Concomitant]
     Indication: PAIN
     Dosage: 10-120MG DAILY
     Route: 048
     Dates: start: 20130201, end: 20131203
  13. CEFOTAXIM [Concomitant]
     Indication: TOOTH INFECTION
     Dosage: 1 G, TID
     Route: 042
     Dates: start: 20131116, end: 20131120
  14. CEFAMOX [Concomitant]
     Indication: TOOTH INFECTION
     Dosage: 1 G, BID
     Route: 048
     Dates: start: 20131103, end: 20131116
  15. NACL [Concomitant]
  16. CHLORHEXIDINE [CHLORHEXIDINE] [Concomitant]

REACTIONS (1)
  - Jaw fracture [Recovering/Resolving]
